FAERS Safety Report 4731049-7 (Version None)
Quarter: 2005Q3

REPORT INFORMATION
  Report Type: 
  Country: None (occurrence: None)
  Receive Date: 20050719
  Receipt Date: 20050104
  Transmission Date: 20060218
  Serious: Yes (Hospitalization)
  Sender: FDA-Public Use
  Company Number: 2005BI000586

PATIENT
  Age: 42 Year
  Sex: Male
  Weight: 68.0396 kg

DRUGS (2)
  1. AVONEX [Suspect]
     Indication: MULTIPLE SCLEROSIS
  2. REBIF [Concomitant]

REACTIONS (2)
  - CHEST PAIN [None]
  - MULTIPLE SCLEROSIS RELAPSE [None]
